FAERS Safety Report 4691711-1 (Version None)
Quarter: 2005Q2

REPORT INFORMATION
  Report Type: 
  Country: None (occurrence: None)
  Receive Date: 20050608
  Receipt Date: 20040420
  Transmission Date: 20051028
  Serious: Yes (Other)
  Sender: FDA-Public Use
  Company Number: 355962

PATIENT

DRUGS (2)
  1. ACCUTANE [Suspect]
     Indication: DRUG USE FOR UNKNOWN INDICATION
     Dosage: ORAL
     Route: 048
     Dates: start: 19990208, end: 19990601
  2. ORAL CONTRACEPTION (ORAL CONTRACEPTIVE NOS) [Concomitant]

REACTIONS (3)
  - ABORTION INDUCED [None]
  - NO ADVERSE EFFECT [None]
  - PREGNANCY [None]
